FAERS Safety Report 12930700 (Version 2)
Quarter: 2016Q4

REPORT INFORMATION
  Report Type: Report from Study
  Country: CN (occurrence: CN)
  Receive Date: 20161110
  Receipt Date: 20161124
  Transmission Date: 20170207
  Serious: Yes (Life-Threatening, Hospitalization)
  Sender: FDA-Public Use
  Company Number: CN-ROCHE-1842856

PATIENT
  Age: 40 Year
  Sex: Female
  Weight: 42.5 kg

DRUGS (7)
  1. RO 5190591 (HCV PROTEASE INHIBITOR) [Suspect]
     Active Substance: DANOPREVIR
     Indication: CHRONIC HEPATITIS C
     Dosage: DATE OF LAST DOSE PRIOR TO BOTH SAE: 08/OCT/2016.
     Route: 048
     Dates: start: 20160728, end: 20161010
  2. PEG-INTERFERON ALFA 2A [Suspect]
     Active Substance: PEGINTERFERON ALFA-2A
     Route: 065
     Dates: start: 20161014
  3. RITONAVIR. [Suspect]
     Active Substance: RITONAVIR
     Route: 048
     Dates: start: 20161014
  4. RO 5190591 (HCV PROTEASE INHIBITOR) [Suspect]
     Active Substance: DANOPREVIR
     Route: 048
     Dates: start: 20161014
  5. RIBAVIRIN. [Suspect]
     Active Substance: RIBAVIRIN
     Indication: CHRONIC HEPATITIS C
     Dosage: MOST RECENT DOSE OF RIBAVIRIN: 10/OCT/2016.
     Route: 048
     Dates: start: 20160728, end: 20161010
  6. RITONAVIR. [Suspect]
     Active Substance: RITONAVIR
     Indication: CHRONIC HEPATITIS C
     Dosage: DATE OF LAST DOSE PRIOR TO BOTH  SAE: 08/OCT/2016.
     Route: 048
     Dates: start: 20160728, end: 20161010
  7. PEG-INTERFERON ALFA 2A [Suspect]
     Active Substance: PEGINTERFERON ALFA-2A
     Indication: CHRONIC HEPATITIS C
     Dosage: DATE OF LAST DOSE PRIOR TO BOTH SAE: 06/OCT/2016.
     Route: 065
     Dates: start: 20160728, end: 20161010

REACTIONS (2)
  - Febrile neutropenia [Recovered/Resolved with Sequelae]
  - Tuberculosis [Not Recovered/Not Resolved]

NARRATIVE: CASE EVENT DATE: 20161009
